FAERS Safety Report 12169487 (Version 1)
Quarter: 2016Q1

REPORT INFORMATION
  Report Type: Spontaneous
  Country: US (occurrence: US)
  Receive Date: 20160310
  Receipt Date: 20160310
  Transmission Date: 20160526
  Serious: Yes (Other)
  Sender: FDA-Public Use
  Company Number: US-SA-2016SA046969

PATIENT
  Age: 65 Year
  Sex: Female

DRUGS (2)
  1. LANTUS SOLOSTAR [Suspect]
     Active Substance: INSULIN GLARGINE
     Indication: TYPE 2 DIABETES MELLITUS
     Dosage: START DATE: COUPLE OF YEARS DOSE:26 UNIT(S)
     Route: 065
  2. SOLOSTAR [Concomitant]
     Active Substance: DEVICE

REACTIONS (8)
  - Burning sensation [Unknown]
  - Dyskinesia [Unknown]
  - Radiculopathy [Unknown]
  - Peripheral nerve destruction [Unknown]
  - Pain in extremity [Unknown]
  - Neuralgia [Unknown]
  - Knee operation [Unknown]
  - Visual impairment [Unknown]

NARRATIVE: CASE EVENT DATE: 201510
